FAERS Safety Report 7770720-X (Version None)
Quarter: 2011Q3

REPORT INFORMATION
  Report Type: 
  Country: None (occurrence: None)
  Receive Date: 20110922
  Receipt Date: 20110309
  Transmission Date: 20111222
  Serious: No
  Sender: FDA-Public Use
  Company Number: US-ASTRAZENECA-2011SE13114

PATIENT
  Age: 30 Year
  Sex: Female
  Weight: 108.9 kg

DRUGS (4)
  1. SEROQUEL XR [Suspect]
     Indication: BIPOLAR DISORDER
     Route: 048
     Dates: start: 20100101
  2. TEGRETOL [Concomitant]
     Indication: BIPOLAR DISORDER
  3. SEROQUEL XR [Suspect]
     Dosage: CUTTING THE TABLETS INTO QUARTERS
     Route: 048
  4. XANAX [Concomitant]
     Indication: BIPOLAR DISORDER

REACTIONS (4)
  - INSOMNIA [None]
  - SEDATION [None]
  - WRONG TECHNIQUE IN DRUG USAGE PROCESS [None]
  - DRUG DOSE OMISSION [None]
